FAERS Safety Report 9294458 (Version 1)
Quarter: 2013Q1

REPORT INFORMATION
  Report Type: Spontaneous
  Country: US (occurrence: US)
  Receive Date: 20121227
  Receipt Date: 20121227
  Transmission Date: 20140127
  Serious: Yes (Other)
  Sender: FDA-Public Use
  Company Number: PHEH2012US018867

PATIENT
  Age: 28 Year
  Sex: Female
  Weight: 108.8 kg

DRUGS (1)
  1. CLOZARIL (CLOZAPINE) [Suspect]
     Indication: BIPOLAR DISORDER
     Route: 048
     Dates: start: 20100410

REACTIONS (2)
  - Weight increased [None]
  - Affective disorder [None]
